FAERS Safety Report 6370753-4 (Version None)
Quarter: 2009Q3

REPORT INFORMATION
  Report Type: 
  Country: None (occurrence: None)
  Receive Date: 20090923
  Receipt Date: 20070619
  Transmission Date: 20100115
  Serious: Yes (Other)
  Sender: FDA-Public Use
  Company Number: US-ASTRAZENECA-2006UW25310

PATIENT
  Age: 51 Year
  Sex: Female
  Weight: 49.4 kg

DRUGS (17)
  1. SEROQUEL [Suspect]
     Indication: MENTAL DISORDER
     Route: 048
     Dates: start: 20050101, end: 20060101
  2. SEROQUEL [Suspect]
     Dosage: 100-200 MG
     Route: 048
     Dates: start: 20051108
  3. ABILIFY [Concomitant]
  4. KLONOPIN [Concomitant]
     Dosage: 0.5-2 MG
     Route: 048
  5. VICOPROFEN [Concomitant]
     Route: 048
  6. PREDNISONE [Concomitant]
     Route: 048
  7. NIRAVAM [Concomitant]
  8. SPIRIVA [Concomitant]
  9. EFFEXOR [Concomitant]
     Dosage: 75-150 MG
     Route: 048
  10. CYMBALTA [Concomitant]
     Dosage: 30-60 MG
  11. ZYPREXA [Concomitant]
     Route: 048
  12. SOMA [Concomitant]
  13. ADVAIR DISKUS 100/50 [Concomitant]
     Route: 055
  14. REQUIP [Concomitant]
     Dosage: 1-2 MG
  15. SYNTHROID [Concomitant]
     Route: 048
  16. LYRICA [Concomitant]
  17. VESICARE [Concomitant]

REACTIONS (2)
  - DIABETES MELLITUS [None]
  - TARDIVE DYSKINESIA [None]
